FAERS Safety Report 8508364-4 (Version None)
Quarter: 2012Q2

REPORT INFORMATION
  Report Type: 
  Country: None (occurrence: None)
  Receive Date: 20120405
  Receipt Date: 20090310
  Transmission Date: 20120825
  Serious: Yes (Disabling)
  Sender: FDA-Public Use
  Company Number: PHEH2008US09489

PATIENT
  Sex: Female
  Weight: 51.2 kg

DRUGS (1)
  1. RECLAST [Suspect]
     Indication: OSTEOPOROSIS
     Dosage: 5 MG, ONCE/SINGLE, INFUSION
     Dates: start: 20080815

REACTIONS (4)
  - MOBILITY DECREASED [None]
  - ARTHRALGIA [None]
  - BONE PAIN [None]
  - MYALGIA [None]
